FAERS Safety Report 9225821 (Version 1)
Quarter: 2013Q2

REPORT INFORMATION
  Report Type: Spontaneous
  Country: US (occurrence: None)
  Receive Date: 20130410
  Receipt Date: 20130410
  Transmission Date: 20140414
  Serious: Yes (Hospitalization)
  Sender: FDA-Public Use
  Company Number: None

PATIENT
  Age: 54 Year
  Sex: Female
  Weight: 69.3 kg

DRUGS (12)
  1. FENTANYL PATCH [Suspect]
     Indication: FRACTURE PAIN
     Dosage: 200 MG Q DAYS TOPICAL
     Route: 061
  2. ABILIFY [Concomitant]
  3. CLONAZEPAM [Concomitant]
  4. FLEXERIL [Concomitant]
  5. COLACE [Concomitant]
  6. COLACE [Concomitant]
  7. MULTAW [Concomitant]
  8. ERYTHROPOIETIN [Concomitant]
  9. FAMOMTIDINE [Concomitant]
  10. FLONASE [Concomitant]
  11. HYDROMORPHONE [Concomitant]
  12. SYNTHROID [Concomitant]

REACTIONS (9)
  - Somnolence [None]
  - Pleural effusion [None]
  - Tachypnoea [None]
  - Pain [None]
  - Respiratory failure [None]
  - Hypoxia [None]
  - Fluid overload [None]
  - Pneumonia [None]
  - Hypoventilation [None]
